FAERS Safety Report 7693193-4 (Version None)
Quarter: 2011Q3

REPORT INFORMATION
  Report Type: 
  Country: None (occurrence: None)
  Receive Date: 20110819
  Receipt Date: 20110810
  Transmission Date: 20111222
  Serious: Yes (Other)
  Sender: FDA-Public Use
  Company Number: US-BAYER-201039940NA

PATIENT
  Age: 50 Year
  Sex: Female
  Weight: 85 kg

DRUGS (11)
  1. CARTIA XT [Concomitant]
  2. PRILOSEC [Concomitant]
  3. VITAMIN E [Concomitant]
  4. VITAMIN B [Concomitant]
  5. NABUMETONE [Concomitant]
  6. YAZ [Suspect]
     Indication: ACNE
     Route: 048
     Dates: start: 20070226
  7. ALLEGRA [Concomitant]
  8. CARDIZEM [Concomitant]
     Indication: CARDIAC DISORDER
     Dosage: UNK
     Dates: start: 20000101
  9. NORVASC [Concomitant]
     Indication: CARDIAC DISORDER
     Dosage: UNK
     Dates: start: 20000101
  10. PREDNISONE [Concomitant]
  11. NEXIUM [Concomitant]

REACTIONS (2)
  - DEEP VEIN THROMBOSIS [None]
  - THROMBOSIS [None]
